FAERS Safety Report 5598839-2 (Version None)
Quarter: 2008Q1

REPORT INFORMATION
  Report Type: 
  Country: None (occurrence: None)
  Receive Date: 20080122
  Receipt Date: 20080110
  Transmission Date: 20080703
  Serious: Yes (Hospitalization)
  Sender: FDA-Public Use
  Company Number: US-AMGEN-US260193

PATIENT
  Age: 41 Year
  Sex: Female

DRUGS (1)
  1. EPOGEN [Suspect]
     Indication: DRUG USE FOR UNKNOWN INDICATION
     Dates: start: 20080109, end: 20080109

REACTIONS (2)
  - BLINDNESS TRANSIENT [None]
  - BLOOD PRESSURE INCREASED [None]
